FAERS Safety Report 7328808-3 (Version None)
Quarter: 2011Q1

REPORT INFORMATION
  Report Type: 
  Country: None (occurrence: None)
  Receive Date: 20110303
  Receipt Date: 20110223
  Transmission Date: 20110831
  Serious: Yes (Hospitalization)
  Sender: FDA-Public Use
  Company Number: JP-ROCHE-761596

PATIENT
  Sex: Female
  Weight: 66 kg

DRUGS (7)
  1. FAMOSTAGINE [Concomitant]
     Route: 042
  2. DECADRON [Concomitant]
     Route: 065
  3. HERCEPTIN [Suspect]
     Indication: BREAST CANCER METASTATIC
     Dosage: NOTE: DOSAGE IS UNCERTAIN. DOSE FORM: INJECTION.
     Route: 041
     Dates: start: 20110217, end: 20110217
  4. TAXOL [Suspect]
     Indication: BREAST CANCER METASTATIC
     Dosage: NOTE: DOSAGE IS UNCERTAIN. DOSE FORM: INJECTION.
     Route: 041
     Dates: start: 20110217
  5. KYTRIL [Concomitant]
     Route: 041
  6. HERCEPTIN [Suspect]
     Dosage: DOSSAGE IS UNCERTAIN.
     Route: 041
     Dates: start: 20110224
  7. RESTAMIN [Concomitant]
     Route: 048

REACTIONS (2)
  - WHITE BLOOD CELL COUNT INCREASED [None]
  - INFUSION RELATED REACTION [None]
